FAERS Safety Report 8120343-8 (Version None)
Quarter: 2012Q1

REPORT INFORMATION
  Report Type: 
  Country: None (occurrence: None)
  Receive Date: 20120207
  Receipt Date: 20120206
  Transmission Date: 20120608
  Serious: Yes (Congenital Anomaly)
  Sender: FDA-Public Use
  Company Number: US-GLAXOSMITHKLINE-A0963952A

PATIENT
  Sex: Female

DRUGS (7)
  1. VISTARIL [Concomitant]
     Indication: ANXIETY DISORDER
     Route: 064
  2. VALIUM [Concomitant]
     Indication: PANIC ATTACK
     Route: 064
  3. PAXIL [Suspect]
     Indication: ANXIETY DISORDER
     Dosage: 20MG PER DAY
     Route: 064
     Dates: start: 19980101, end: 19980101
  4. ZOLOFT [Concomitant]
     Indication: ANXIETY
     Route: 064
     Dates: start: 19980101
  5. BENADRYL [Concomitant]
     Route: 064
  6. MULTI-VITAMINS [Concomitant]
     Route: 064
  7. TENORMIN [Concomitant]
     Indication: PALPITATIONS
     Route: 064

REACTIONS (3)
  - CARDIAC MURMUR [None]
  - SYNCOPE [None]
  - FOETAL EXPOSURE DURING PREGNANCY [None]
